FAERS Safety Report 21312124 (Version 1)
Quarter: 2022Q3

REPORT INFORMATION
  Report Type: Spontaneous
  Country: US (occurrence: None)
  Receive Date: 20220909
  Receipt Date: 20220909
  Transmission Date: 20221027
  Serious: No
  Sender: FDA-Public Use
  Company Number: US-ARIS GLOBAL-202204-0696

PATIENT
  Age: 74 Year
  Sex: Female

DRUGS (10)
  1. OXERVATE [Suspect]
     Active Substance: CENEGERMIN-BKBJ
     Indication: Neurotrophic keratopathy
     Route: 047
     Dates: start: 20220328, end: 20220414
  2. OXERVATE [Suspect]
     Active Substance: CENEGERMIN-BKBJ
     Route: 047
     Dates: start: 20220429
  3. DORZOLAMIDE [Concomitant]
     Active Substance: DORZOLAMIDE
     Indication: Glaucoma
     Route: 047
     Dates: start: 20190204
  4. MOXIFLOXACIN [Concomitant]
     Active Substance: MOXIFLOXACIN
     Indication: Corneal transplant
     Route: 047
     Dates: start: 20220416
  5. DUREZOL [Concomitant]
     Active Substance: DIFLUPREDNATE
     Indication: Corneal transplant
     Route: 047
     Dates: start: 20220416
  6. BRIMONIDINE [Concomitant]
     Active Substance: BRIMONIDINE TARTRATE
     Indication: Glaucoma
     Route: 047
     Dates: start: 20190228
  7. TRAVOPROST [Concomitant]
     Active Substance: TRAVOPROST
     Indication: Glaucoma
     Route: 047
     Dates: start: 20211230
  8. RHOPRESSA [Concomitant]
     Active Substance: NETARSUDIL MESYLATE
     Indication: Glaucoma
     Route: 047
     Dates: start: 20191014
  9. ATROPINE [Concomitant]
     Active Substance: ATROPINE
     Indication: Inflammation
     Route: 047
     Dates: start: 20220429
  10. DEVICE [Concomitant]
     Active Substance: DEVICE

REACTIONS (1)
  - Corneal transplant [Recovering/Resolving]

NARRATIVE: CASE EVENT DATE: 20220415
